FAERS Safety Report 26217286 (Version 1)
Quarter: 2025Q4

REPORT INFORMATION
  Report Type: Spontaneous
  Country: EU (occurrence: EU)
  Receive Date: 20251231
  Receipt Date: 20251231
  Transmission Date: 20260117
  Serious: Yes (Hospitalization, Congenital Anomaly)
  Sender: ROCHE
  Company Number: EU-ROCHE-10000465787

PATIENT
  Age: 2 Month

DRUGS (1)
  1. OCREVUS [Suspect]
     Active Substance: OCRELIZUMAB
     Indication: Product used for unknown indication
     Dosage: LAST OCREVUS IV ON 11/06/2024.
     Route: 064

REACTIONS (2)
  - Foetal exposure during pregnancy [Unknown]
  - Hernia [Unknown]
